FAERS Safety Report 6492249-1 (Version None)
Quarter: 2009Q4

REPORT INFORMATION
  Report Type: 
  Country: None (occurrence: None)
  Receive Date: 20091214
  Receipt Date: 20091209
  Transmission Date: 20100525
  Serious: Yes (Death, Hospitalization)
  Sender: FDA-Public Use
  Company Number: DE-BAYER-200918445GPV

PATIENT
  Age: 78 Year
  Sex: Male
  Weight: 84 kg

DRUGS (4)
  1. SORAFENIB [Suspect]
     Indication: HEPATIC NEOPLASM MALIGNANT
     Dosage: TOTAL DAILY DOSE: 800 MG
     Route: 048
     Dates: end: 20090328
  2. FUROSEMID [Concomitant]
     Indication: ASCITES
     Route: 065
  3. SPIRONOLACTONE [Concomitant]
     Indication: ASCITES
     Route: 065
  4. BISOPROLOL [Concomitant]
     Indication: HYPERTENSION
     Route: 065

REACTIONS (2)
  - HEPATIC FAILURE [None]
  - JAUNDICE [None]
